FAERS Safety Report 14690012 (Version 1)
Quarter: 2018Q1

REPORT INFORMATION
  Report Type: Spontaneous
  Country: US (occurrence: US)
  Receive Date: 20180327
  Receipt Date: 20180327
  Transmission Date: 20180509
  Serious: Yes (Disabling, Other)
  Sender: FDA-Public Use
  Company Number: None

PATIENT
  Age: 49 Year
  Sex: Female
  Weight: 75.6 kg

DRUGS (2)
  1. RESTASIS [Suspect]
     Active Substance: CYCLOSPORINE
     Indication: DRY EYE
     Dosage: ?          QUANTITY:1 DROP(S);?
     Route: 047
     Dates: start: 20180120, end: 20180326
  2. AMLODIPINE [Concomitant]
     Active Substance: AMLODIPINE BESYLATE

REACTIONS (10)
  - Oesophageal disorder [None]
  - Laryngitis [None]
  - Cough [None]
  - Sinus disorder [None]
  - Gastrooesophageal reflux disease [None]
  - Feeding disorder [None]
  - Oropharyngeal pain [None]
  - Alopecia [None]
  - Throat clearing [None]
  - Depressed mood [None]

NARRATIVE: CASE EVENT DATE: 20180327
